FAERS Safety Report 4839607-6 (Version None)
Quarter: 2005Q4

REPORT INFORMATION
  Report Type: 
  Country: None (occurrence: None)
  Receive Date: 20051125
  Receipt Date: 20051110
  Transmission Date: 20060501
  Serious: Yes (Hospitalization)
  Sender: FDA-Public Use
  Company Number: HQWYE353902NOV05

PATIENT
  Age: 44 Year
  Sex: Female

DRUGS (8)
  1. MYLOTARG [Suspect]
     Indication: ACUTE MYELOID LEUKAEMIA RECURRENT
     Dosage: A SINGLE 9 MG/M^2 DOSE, INTRAVENOUS DRIP
     Route: 041
     Dates: start: 20050928, end: 20050928
  2. LAMIVUDINE [Concomitant]
  3. COTRIM [Concomitant]
  4. DIFLUCAN (FLUCONAZOLE) [Concomitant]
  5. UNSPECIFIED H2 RECEPTOR ANTAGONIST IUNSPECIFIED H2 RECEPTOR ANTAGONIST [Concomitant]
  6. CIPROFLOXACIN HYDROCHLORIDE [Concomitant]
  7. ZOLPIDEM TARTRATE [Concomitant]
  8. MAXIPIME [Concomitant]

REACTIONS (10)
  - ALANINE AMINOTRANSFERASE INCREASED [None]
  - ASPARTATE AMINOTRANSFERASE INCREASED [None]
  - BLOOD ALKALINE PHOSPHATASE INCREASED [None]
  - BLOOD LACTATE DEHYDROGENASE INCREASED [None]
  - CHILLS [None]
  - DISSEMINATED INTRAVASCULAR COAGULATION [None]
  - FEBRILE NEUTROPENIA [None]
  - FIBRIN DEGRADATION PRODUCTS INCREASED [None]
  - GAMMA-GLUTAMYLTRANSFERASE INCREASED [None]
  - PROCTALGIA [None]
